FAERS Safety Report 19449717 (Version 2)
Quarter: 2022Q3

REPORT INFORMATION
  Report Type: Report from Study
  Country: US (occurrence: US)
  Receive Date: 20210622
  Receipt Date: 20220829
  Transmission Date: 20221026
  Serious: Yes (Other)
  Sender: FDA-Public Use
  Company Number: US-TAKEDA-US202032757

PATIENT
  Sex: Male

DRUGS (1)
  1. HUMAN IMMUNOGLOBULIN G [Suspect]
     Active Substance: HUMAN IMMUNOGLOBULIN G
     Indication: Primary immunodeficiency syndrome
     Dosage: UNK
     Route: 065
     Dates: end: 202205

REACTIONS (6)
  - Multiple sclerosis [Unknown]
  - Systemic lupus erythematosus [Unknown]
  - Lung disorder [Unknown]
  - Illness [Unknown]
  - Therapy interrupted [Unknown]
  - Insurance issue [Unknown]
